FAERS Safety Report 25485375 (Version 2)
Quarter: 2025Q3

REPORT INFORMATION
  Report Type: Spontaneous
  Country: US (occurrence: US)
  Receive Date: 20250626
  Receipt Date: 20250725
  Transmission Date: 20251020
  Serious: No
  Sender: SANOFI AVENTIS
  Company Number: US-SA-2025SA180266

PATIENT
  Age: 69 Year
  Sex: Female

DRUGS (32)
  1. REZUROCK [Suspect]
     Active Substance: BELUMOSUDIL
     Indication: Chronic graft versus host disease
     Dosage: 200 MG, QD
     Route: 048
  2. REZUROCK [Suspect]
     Active Substance: BELUMOSUDIL
     Indication: Acute lymphocytic leukaemia
  3. JAKAFI [Concomitant]
     Active Substance: RUXOLITINIB
  4. ASMANEX [Concomitant]
     Active Substance: MOMETASONE FUROATE
  5. ASMANEX [Concomitant]
     Active Substance: MOMETASONE FUROATE
  6. AZITHROMYCIN [Concomitant]
     Active Substance: AZITHROMYCIN
  7. AZITHROMYCIN [Concomitant]
     Active Substance: AZITHROMYCIN
  8. CRESTOR [Concomitant]
     Active Substance: ROSUVASTATIN CALCIUM
  9. CRESTOR [Concomitant]
     Active Substance: ROSUVASTATIN CALCIUM
  10. DOXYCYCLINE HYCLATE [Concomitant]
     Active Substance: DOXYCYCLINE HYCLATE
  11. DOXYCYCLINE HYCLATE [Concomitant]
     Active Substance: DOXYCYCLINE HYCLATE
  12. ELIQUIS [Concomitant]
     Active Substance: APIXABAN
  13. FAMOTIDINE [Concomitant]
     Active Substance: FAMOTIDINE
  14. IRON [Concomitant]
     Active Substance: IRON
  15. LEVOTHYROXINE SODIUM [Concomitant]
     Active Substance: LEVOTHYROXINE SODIUM
  16. LINZESS [Concomitant]
     Active Substance: LINACLOTIDE
  17. LORAZEPAM [Concomitant]
     Active Substance: LORAZEPAM
  18. LOSARTAN POTASSIUM [Concomitant]
     Active Substance: LOSARTAN POTASSIUM
  19. MEMANTINE [Concomitant]
     Active Substance: MEMANTINE
  20. METOPROLOL TARTRATE [Concomitant]
     Active Substance: METOPROLOL TARTRATE
  21. MIRALAX [Concomitant]
     Active Substance: POLYETHYLENE GLYCOL 3350
  22. MONTELUKAST SODIUM [Concomitant]
     Active Substance: MONTELUKAST SODIUM
  23. OXYCODONE [Concomitant]
     Active Substance: OXYCODONE
  24. POTASSIUM CHLORIDE [Concomitant]
     Active Substance: POTASSIUM CHLORIDE
  25. PREDNISONE [Concomitant]
     Active Substance: PREDNISONE
  26. PROCHLORPERAZINE MALEATE [Concomitant]
     Active Substance: PROCHLORPERAZINE MALEATE
  27. REFRESH P.M. [Concomitant]
     Active Substance: MINERAL OIL\PETROLATUM
  28. RESTASIS [Concomitant]
     Active Substance: CYCLOSPORINE
  29. TEMAZEPAM [Concomitant]
     Active Substance: TEMAZEPAM
  30. URSODIOL [Concomitant]
     Active Substance: URSODIOL
  31. VITAMIN D3 [Concomitant]
     Active Substance: CHOLECALCIFEROL
  32. XANAX [Concomitant]
     Active Substance: ALPRAZOLAM

REACTIONS (4)
  - Feeling abnormal [Unknown]
  - Fatigue [Unknown]
  - Dyspnoea [Unknown]
  - Product use in unapproved indication [Unknown]
